FAERS Safety Report 8162500-0 (Version None)
Quarter: 2012Q1

REPORT INFORMATION
  Report Type: 
  Country: None (occurrence: None)
  Receive Date: 20120224
  Receipt Date: 20120224
  Transmission Date: 20120608
  Serious: Yes (Other)
  Sender: FDA-Public Use
  Company Number: None

PATIENT
  Age: 49 Year
  Sex: Male
  Weight: 111.13 kg

DRUGS (2)
  1. N/A [Concomitant]
     Indication: LIPIDS INCREASED
     Dosage: N/A
     Dates: start: 19941201, end: 19941201
  2. PRAVASTATIN [Suspect]
     Indication: BLOOD CHOLESTEROL INCREASED
     Dosage: 20.0 MG
     Route: 048
     Dates: start: 20070801, end: 20111031

REACTIONS (3)
  - NEUROPATHY PERIPHERAL [None]
  - PAIN IN EXTREMITY [None]
  - NERVOUS SYSTEM DISORDER [None]
